FAERS Safety Report 9871373 (Version 1)
Quarter: 2014Q1

REPORT INFORMATION
  Report Type: Spontaneous
  Country: FR (occurrence: FR)
  Receive Date: 20140205
  Receipt Date: 20140205
  Transmission Date: 20141002
  Serious: Yes (Other)
  Sender: FDA-Public Use
  Company Number: FR-PFIZER INC-2014030291

PATIENT
  Age: 34 Year
  Sex: Male

DRUGS (2)
  1. EFFEXOR LP [Suspect]
     Dosage: UNK
     Route: 048
     Dates: start: 2010
  2. OXYNORM [Suspect]
     Dosage: MAXIMUM OF 160 MG DAILY
     Route: 048
     Dates: start: 201204, end: 201310

REACTIONS (3)
  - Teeth brittle [Not Recovered/Not Resolved]
  - Tooth discolouration [Not Recovered/Not Resolved]
  - Poor dental condition [Not Recovered/Not Resolved]
